FAERS Safety Report 5621659-7 (Version None)
Quarter: 2008Q1

REPORT INFORMATION
  Report Type: 
  Country: None (occurrence: None)
  Receive Date: 20080211
  Receipt Date: 20080201
  Transmission Date: 20080703
  Serious: Yes (Congenital Anomaly)
  Sender: FDA-Public Use
  Company Number: DK-ASTRAZENECA-2008SE00606

PATIENT
  Age: 15 Month
  Sex: Female

DRUGS (4)
  1. ZOLMITRIPTAN [Suspect]
     Indication: MIGRAINE
     Route: 048
     Dates: start: 20040901
  2. RELPAX [Suspect]
     Indication: MIGRAINE
     Route: 048
     Dates: start: 20040921
  3. SUMATRIPTAN SUCCINATE [Suspect]
     Indication: MIGRAINE
     Route: 048
     Dates: start: 20040901
  4. NITROFURANTOIN [Concomitant]
     Indication: URINARY TRACT INFECTION
     Dosage: 50 MG
     Route: 048
     Dates: start: 20041002, end: 20041011

REACTIONS (1)
  - PETIT MAL EPILEPSY [None]
